FAERS Safety Report 16140944 (Version 1)
Quarter: 2019Q2

REPORT INFORMATION
  Report Type: Spontaneous
  Country: CA (occurrence: CA)
  Receive Date: 20190401
  Receipt Date: 20190401
  Transmission Date: 20190711
  Serious: Yes (Hospitalization, Other)
  Sender: FDA-Public Use
  Company Number: CA-009507513-1903CAN010298

PATIENT
  Sex: Female

DRUGS (2)
  1. FOSAMAX [Suspect]
     Active Substance: ALENDRONATE SODIUM
     Indication: PRODUCT USED FOR UNKNOWN INDICATION
     Dosage: 70 MILLIGRAM, QW
     Route: 048
     Dates: start: 2001, end: 200601
  2. APO-ALENDRONATE [Suspect]
     Active Substance: ALENDRONATE SODIUM
     Indication: PRODUCT USED FOR UNKNOWN INDICATION
     Dosage: 70 MILLIGRAM, QW
     Route: 048
     Dates: start: 20060321, end: 20110924

REACTIONS (10)
  - Fracture nonunion [Recovering/Resolving]
  - Blood phosphorus decreased [Unknown]
  - Tibia fracture [Recovered/Resolved]
  - Bone disorder [Unknown]
  - Blood creatinine increased [Unknown]
  - Femur fracture [Unknown]
  - Device failure [Unknown]
  - Femur fracture [Unknown]
  - Blood calcium decreased [Unknown]
  - Blood 25-hydroxycholecalciferol increased [Unknown]

NARRATIVE: CASE EVENT DATE: 20110122
